FAERS Safety Report 9353770 (Version 1)
Quarter: 2013Q2

REPORT INFORMATION
  Report Type: Spontaneous
  Country: JP (occurrence: JP)
  Receive Date: 20130618
  Receipt Date: 20130618
  Transmission Date: 20140414
  Serious: Yes (Other)
  Sender: FDA-Public Use
  Company Number: JP-PFIZER INC-2013171506

PATIENT
  Age: 10 Year
  Sex: Female

DRUGS (2)
  1. METHYLPREDNISOLONE SODIUM SUCCINATE [Suspect]
     Indication: NEPHROTIC SYNDROME
     Dosage: UNK
     Route: 042
  2. PREDNISONE [Concomitant]
     Indication: NEPHROTIC SYNDROME
     Dosage: 0.5-1.5 (192), MG/KG/DAY

REACTIONS (3)
  - Spinal compression fracture [Unknown]
  - Epidural lipomatosis [Unknown]
  - Back pain [Unknown]
